FAERS Safety Report 12997572 (Version 8)
Quarter: 2017Q1

REPORT INFORMATION
  Report Type: Spontaneous
  Country: DE (occurrence: DE)
  Receive Date: 20161205
  Receipt Date: 20170307
  Transmission Date: 20170428
  Serious: Yes (Hospitalization, Other)
  Sender: FDA-Public Use
  Company Number: PHHY2016DE166055

PATIENT
  Sex: Male
  Weight: 64 kg

DRUGS (7)
  1. ASPIRIN PROTECT [Concomitant]
     Active Substance: ASPIRIN
     Indication: PRODUCT USED FOR UNKNOWN INDICATION
     Dosage: 100 MG, UNK
     Route: 048
     Dates: start: 20100226
  2. EPLERENONE. [Suspect]
     Active Substance: EPLERENONE
     Indication: PRODUCT USED FOR UNKNOWN INDICATION
     Dosage: 1 DF, QD
     Route: 065
     Dates: start: 20160721
  3. ENTRESTO [Suspect]
     Active Substance: SACUBITRIL\VALSARTAN
     Indication: PRODUCT USED FOR UNKNOWN INDICATION
     Dosage: 1 DF (24/26 MG), BID
     Route: 048
     Dates: start: 20160721, end: 20160810
  4. ENTRESTO [Suspect]
     Active Substance: SACUBITRIL\VALSARTAN
     Dosage: 150 MG (24/26 MG IN MORNING, 49/51 MG IN EVENING)
     Route: 048
     Dates: start: 20160811
  5. SERTRALINE [Concomitant]
     Active Substance: SERTRALINE HYDROCHLORIDE
     Indication: PRODUCT USED FOR UNKNOWN INDICATION
     Dosage: 0.5 DF, QD (50 MG)
     Route: 065
     Dates: start: 20120216
  6. PROCORALAN [Suspect]
     Active Substance: IVABRADINE
     Indication: PRODUCT USED FOR UNKNOWN INDICATION
     Dosage: 1 DF, QD (7.5 MG)
     Route: 065
     Dates: start: 20160721, end: 20160904
  7. PROCORALAN [Suspect]
     Active Substance: IVABRADINE
     Dosage: 1 DF, QD (5 MG)
     Route: 065
     Dates: start: 20160905

REACTIONS (6)
  - Vision blurred [Recovering/Resolving]
  - Visual acuity reduced [Recovering/Resolving]
  - Retinal detachment [Recovering/Resolving]
  - Vitreous adhesions [Unknown]
  - Cataract [Unknown]
  - Macular hole [Unknown]

NARRATIVE: CASE EVENT DATE: 201609
